FAERS Safety Report 5355622-0 (Version None)
Quarter: 2007Q2

REPORT INFORMATION
  Report Type: 
  Country: None (occurrence: None)
  Receive Date: 20070613
  Receipt Date: 20070612
  Transmission Date: 20071010
  Serious: Yes (Hospitalization)
  Sender: FDA-Public Use
  Company Number: B0474680A

PATIENT
  Age: 83 Year
  Sex: Female
  Weight: 59 kg

DRUGS (6)
  1. CLAMOXYL [Suspect]
     Route: 048
  2. AUGMENTIN '125' [Suspect]
     Dosage: 1G THREE TIMES PER DAY
     Route: 065
  3. CLAFORAN [Suspect]
     Route: 065
     Dates: start: 20070201
  4. OFLOCET [Suspect]
     Route: 065
     Dates: start: 20070201
  5. LASIX [Concomitant]
     Dosage: 20MG PER DAY
     Route: 048
  6. PREVISCAN [Concomitant]
     Dosage: .5UNIT PER DAY
     Route: 048

REACTIONS (2)
  - BACTERIA STOOL IDENTIFIED [None]
  - DIARRHOEA [None]
